FAERS Safety Report 14667139 (Version 6)
Quarter: 2018Q2

REPORT INFORMATION
  Report Type: Report from Study
  Country: ES (occurrence: ES)
  Receive Date: 20180322
  Receipt Date: 20180508
  Transmission Date: 20180711
  Serious: Yes (Hospitalization)
  Sender: FDA-Public Use
  Company Number: ES-ROCHE-2081382

PATIENT
  Age: 83 Year
  Sex: Female
  Weight: 71.2 kg

DRUGS (9)
  1. TRASTUZUMAB. [Suspect]
     Active Substance: TRASTUZUMAB
     Dosage: MAINTENANCE DOSE ?DATE OF LAST DOSE PRIOR TO SAE: 06/FEB/2018, 426 MG
     Route: 042
     Dates: end: 20180322
  2. LETROZOL [Suspect]
     Active Substance: LETROZOLE
     Indication: HER-2 POSITIVE BREAST CANCER
     Dosage: DATE OF LAST DOSE PRIOR TO SAE: 24/FEB/2018
     Route: 048
     Dates: start: 20130716, end: 20180322
  3. TRASTUZUMAB. [Suspect]
     Active Substance: TRASTUZUMAB
     Indication: HER-2 POSITIVE BREAST CANCER
     Dosage: LOADING DOSE, DAY 1?DATE OF LAST DOSE PRIOR TO SAE: 06/FEB/2018, 426 MG
     Route: 042
     Dates: start: 20130716
  4. OLMESARTAN [Concomitant]
     Active Substance: OLMESARTAN
     Route: 065
     Dates: start: 20171219, end: 20180225
  5. CALCIUM CARBONATE. [Concomitant]
     Active Substance: CALCIUM CARBONATE
     Route: 065
     Dates: start: 20130716, end: 20180225
  6. PERTUZUMAB. [Suspect]
     Active Substance: PERTUZUMAB
     Indication: HER-2 POSITIVE BREAST CANCER
     Dosage: DAY 1 OF FIRST TREATMENT CYCLE (AS PER PROTOCOL) (LOADING DOSE)?DATE OF LAST DOSE PRIOR TO SAE: 06/F
     Route: 042
     Dates: start: 20130716
  7. PARACETAMOL [Concomitant]
     Active Substance: ACETAMINOPHEN
     Route: 065
     Dates: start: 20150407, end: 20180225
  8. PERTUZUMAB. [Suspect]
     Active Substance: PERTUZUMAB
     Dosage: DAY 1 OR DAY 2 OF EACH SUBSEQUENT 3-WEEK CYCLE (AS PER PROTOCOL) (MAINTENANCE DOSE) ( VIAL)?DATE OF
     Route: 042
     Dates: end: 20180322
  9. AMLODIPINE [Concomitant]
     Active Substance: AMLODIPINE BESYLATE
     Route: 065
     Dates: start: 20171219, end: 20180225

REACTIONS (1)
  - Myocardial infarction [Recovered/Resolved]

NARRATIVE: CASE EVENT DATE: 20180225
